FAERS Safety Report 4920521-2 (Version None)
Quarter: 2006Q1

REPORT INFORMATION
  Report Type: 
  Country: None (occurrence: None)
  Receive Date: 20060223
  Receipt Date: 20060216
  Transmission Date: 20060701
  Serious: Yes (Other)
  Sender: FDA-Public Use
  Company Number: DK-SANOFI-SYNTHELABO-A01200601254

PATIENT
  Age: 69 Year

DRUGS (2)
  1. ELOXATIN [Suspect]
     Route: 042
     Dates: start: 20060116, end: 20060116
  2. CAPECITABINE [Concomitant]
     Route: 065

REACTIONS (1)
  - LARYNGOSPASM [None]
